FAERS Safety Report 5225086-6 (Version None)
Quarter: 2007Q1

REPORT INFORMATION
  Report Type: 
  Country: None (occurrence: None)
  Receive Date: 20070129
  Receipt Date: 20070111
  Transmission Date: 20070707
  Serious: Yes (Hospitalization)
  Sender: FDA-Public Use
  Company Number: T07-GER-00283-01

PATIENT
  Age: 36 Year
  Sex: Female
  Weight: 72 kg

DRUGS (2)
  1. CIPRALEX (ESCITALOPRAM) [Suspect]
     Indication: DEPRESSION
     Dosage: 10 MG BID PO
     Route: 048
     Dates: start: 20060403, end: 20060413
  2. CIPRALEX (ESCITALOPRAM) [Suspect]
     Indication: PHOBIA
     Dosage: 10 MG BID PO
     Route: 048
     Dates: start: 20060403, end: 20060413

REACTIONS (1)
  - HOSPITALISATION [None]
